FAERS Safety Report 8682832 (Version 3)
Quarter: 2014Q3

REPORT INFORMATION
  Report Type: Spontaneous
  Country: US (occurrence: US)
  Receive Date: 20120725
  Receipt Date: 20140808
  Transmission Date: 20150326
  Serious: Yes (Hospitalization)
  Sender: FDA-Public Use
  Company Number: US-009507513-1207USA008767

PATIENT
  Sex: Female
  Weight: 64.4 kg

DRUGS (1)
  1. NUVARING [Suspect]
     Active Substance: ETHINYL ESTRADIOL\ETONOGESTREL
     Indication: CONTRACEPTION
     Dosage: INSERT 1 RING VAGINALLY EVERY 3 WEEKS
     Route: 067
     Dates: start: 201110, end: 20120125

REACTIONS (9)
  - Road traffic accident [Unknown]
  - Deep vein thrombosis [Unknown]
  - Anaemia [Unknown]
  - Coagulopathy [Unknown]
  - Muscle strain [Unknown]
  - Urinary tract infection [Unknown]
  - Depression [Unknown]
  - Anxiety [Unknown]
  - Thrombectomy [Unknown]

NARRATIVE: CASE EVENT DATE: 201201
